FAERS Safety Report 10664729 (Version 4)
Quarter: 2017Q1

REPORT INFORMATION
  Report Type: Spontaneous
  Country: US (occurrence: US)
  Receive Date: 20141219
  Receipt Date: 20170209
  Transmission Date: 20170428
  Serious: Yes (Hospitalization)
  Sender: FDA-Public Use
  Company Number: US-BAYER-2014-186670

PATIENT
  Age: 26 Year
  Sex: Female
  Weight: 63.49 kg

DRUGS (7)
  1. DEPO-PROVERA [Concomitant]
     Active Substance: MEDROXYPROGESTERONE ACETATE
     Dosage: UNK
     Dates: start: 2007, end: 2013
  2. NUVARING [Concomitant]
     Active Substance: ETHINYL ESTRADIOL\ETONOGESTREL
  3. VICODIN [Concomitant]
     Active Substance: ACETAMINOPHEN\HYDROCODONE BITARTRATE
     Indication: PAIN
  4. LEVAQUIN [Concomitant]
     Active Substance: LEVOFLOXACIN
  5. MIRENA [Suspect]
     Active Substance: LEVONORGESTREL
     Indication: CONTRACEPTION
     Dosage: 20 MCG/24HR, CONT
     Route: 015
     Dates: start: 20080507, end: 20110315
  6. MOTRIN [Concomitant]
     Active Substance: IBUPROFEN
     Indication: PAIN
  7. CALCIUM [Concomitant]
     Active Substance: CALCIUM

REACTIONS (4)
  - Pelvic pain [Not Recovered/Not Resolved]
  - Injury [Not Recovered/Not Resolved]
  - Uterine perforation [Not Recovered/Not Resolved]
  - Abdominal pain [Not Recovered/Not Resolved]

NARRATIVE: CASE EVENT DATE: 20101123
